FAERS Safety Report 17243780 (Version 1)
Quarter: 2020Q1

REPORT INFORMATION
  Report Type: Spontaneous
  Country: US (occurrence: US)
  Receive Date: 20200107
  Receipt Date: 20200107
  Transmission Date: 20200409
  Serious: No
  Sender: FDA-Public Use
  Company Number: US-ROCHE-2406685

PATIENT
  Age: 14 Year
  Sex: Female

DRUGS (1)
  1. ALTEPLASE. [Suspect]
     Active Substance: ALTEPLASE
     Indication: ISCHAEMIC STROKE
     Dosage: DIVIDED INTO A BOLUS AND 1-HOUR INFUSION BEGINNING AT 3.5 HOURS FROM SYMPTOM ONSET.
     Route: 042

REACTIONS (3)
  - Off label use [Unknown]
  - Intentional product use issue [Unknown]
  - No adverse event [Unknown]
